FAERS Safety Report 23625405 (Version 2)
Quarter: 2024Q1

REPORT INFORMATION
  Report Type: Spontaneous
  Country: US (occurrence: US)
  Receive Date: 20240313
  Receipt Date: 20240322
  Transmission Date: 20240410
  Serious: No
  Sender: FDA-Public Use
  Company Number: US-LEO Pharma-368487

PATIENT
  Age: 79 Year
  Sex: Male

DRUGS (10)
  1. ADBRY [Suspect]
     Active Substance: TRALOKINUMAB-LDRM
     Indication: Dermatitis atopic
     Dosage: EXPIRY DATE - 27-JAN-2025
     Route: 058
     Dates: start: 20231126
  2. ADBRY [Suspect]
     Active Substance: TRALOKINUMAB-LDRM
     Indication: Dermatitis atopic
     Dosage: EXPIRY DATE - 27-JAN-2025
     Route: 058
     Dates: start: 20231126
  3. SHINGRIX [Concomitant]
     Active Substance: RECOMBINANT VARICELLA ZOSTER VIRUS (VZV) GLYCOPROTEIN E
     Indication: Product used for unknown indication
     Dosage: 50 MCG/0.5 KIT
  4. Moderna covid bival [Concomitant]
     Indication: Product used for unknown indication
     Dosage: (6MO-5Y)EUA
  5. DESOXIMETASONE [Concomitant]
     Active Substance: DESOXIMETASONE
     Indication: Product used for unknown indication
     Dosage: 0.05 % CREAM
  6. IBUPROFEN [Concomitant]
     Active Substance: IBUPROFEN
     Indication: Product used for unknown indication
     Dosage: 100 % POWDER
  7. MELATONIN [Concomitant]
     Active Substance: MELATONIN
     Indication: Product used for unknown indication
     Dosage: 10 MG CAPSULE
  8. WELLBUTRIN [Concomitant]
     Active Substance: BUPROPION HYDROCHLORIDE
     Indication: Product used for unknown indication
     Dosage: SUSTAINED RELEASE TABLET
  9. PNEUMOVAX 23 [Concomitant]
     Active Substance: PNEUMOCOCCAL VACCINE, POLYVALENT 23
     Indication: Product used for unknown indication
     Dosage: 25MCG/0.5 SYRINGE
  10. TYLENOL [Concomitant]
     Active Substance: ACETAMINOPHEN
     Indication: Product used for unknown indication
     Dosage: 325 MG TABLET

REACTIONS (2)
  - Cardiac pacemaker insertion [Unknown]
  - Injection site reaction [Unknown]

NARRATIVE: CASE EVENT DATE: 20240306
